FAERS Safety Report 5747668-5 (Version None)
Quarter: 2008Q2

REPORT INFORMATION
  Report Type: 
  Country: None (occurrence: None)
  Receive Date: 20080523
  Receipt Date: 20080514
  Transmission Date: 20081010
  Serious: No
  Sender: FDA-Public Use
  Company Number: LT-ASTRAZENECA-2008SE02446

PATIENT
  Age: 28 Year
  Sex: Female
  Weight: 60 kg

DRUGS (2)
  1. SEROQUEL [Suspect]
     Indication: SCHIZOAFFECTIVE DISORDER
     Dosage: 100 MG IN THE MORNING AND 300 MG IN THE EVENING.
     Route: 048
     Dates: start: 20070418, end: 20071121
  2. SEROQUEL [Suspect]
     Dosage: 100 MG IN THE MORNING AND 300 MG IN THE EVENING.
     Route: 048
     Dates: start: 20071128

REACTIONS (1)
  - LEUKOPENIA [None]
